FAERS Safety Report 16842740 (Version 1)
Quarter: 2019Q3

REPORT INFORMATION
  Report Type: Report from Study
  Country: IT (occurrence: IT)
  Receive Date: 20190924
  Receipt Date: 20190924
  Transmission Date: 20191005
  Serious: Yes (Other)
  Sender: FDA-Public Use
  Company Number: IT-TEVA-2019-IT-1111674

PATIENT
  Age: 78 Year
  Sex: Female

DRUGS (7)
  1. LEXOTAN [Concomitant]
     Active Substance: BROMAZEPAM
  2. FERRO-GRAD [Concomitant]
     Active Substance: FERROUS SULFATE
  3. IBUPROFENE [Suspect]
     Active Substance: IBUPROFEN
     Dosage: 1 DF
     Route: 048
     Dates: start: 20190620, end: 20190620
  4. CARDIOASPIRIN [Concomitant]
     Active Substance: ASPIRIN
  5. LASIX [Concomitant]
     Active Substance: FUROSEMIDE
  6. COUMADIN [Concomitant]
     Active Substance: WARFARIN SODIUM
  7. TRIATEC [Concomitant]

REACTIONS (3)
  - Rash [Recovering/Resolving]
  - Dyspnoea [Recovering/Resolving]
  - Pruritus generalised [Recovering/Resolving]

NARRATIVE: CASE EVENT DATE: 20190620
